FAERS Safety Report 4753639-8 (Version None)
Quarter: 2005Q3

REPORT INFORMATION
  Report Type: 
  Country: None (occurrence: None)
  Receive Date: 20050824
  Receipt Date: 20050812
  Transmission Date: 20060218
  Serious: Yes (Disabling)
  Sender: FDA-Public Use
  Company Number: 2005115235

PATIENT
  Age: 78 Year
  Sex: Female
  Weight: 53 kg

DRUGS (5)
  1. ATORVASTATIN CALCIUM [Suspect]
     Indication: BLOOD CHOLESTEROL INCREASED
     Dosage: (80 MG), ORAL
     Route: 048
     Dates: start: 20050117, end: 20050201
  2. OMEPRAZOLE [Concomitant]
  3. CLOPIDOGREL BISULFATE [Concomitant]
  4. BISOPROLOL (BISOPROLOL) [Concomitant]
  5. CANDESARTAN (CANDESARTAN) [Concomitant]

REACTIONS (5)
  - ASTHENIA [None]
  - BLOOD AMYLASE INCREASED [None]
  - LIVER FUNCTION TEST ABNORMAL [None]
  - MALAISE [None]
  - NAUSEA [None]
